FAERS Safety Report 5460574-9 (Version None)
Quarter: 2007Q3

REPORT INFORMATION
  Report Type: 
  Country: None (occurrence: None)
  Receive Date: 20070919
  Receipt Date: 20070910
  Transmission Date: 20080115
  Serious: Yes (Other)
  Sender: FDA-Public Use
  Company Number: US-PFIZER INC-2007075699

PATIENT
  Sex: Female
  Weight: 79.545 kg

DRUGS (2)
  1. CHANTIX [Suspect]
     Indication: ALCOHOL USE
  2. LEVOTHYROXINE SODIUM [Concomitant]
     Indication: THYROID DISORDER

REACTIONS (2)
  - BLISTER [None]
  - INCORRECT DOSE ADMINISTERED [None]
